FAERS Safety Report 4777998-5 (Version None)
Quarter: 2005Q3

REPORT INFORMATION
  Report Type: 
  Country: None (occurrence: None)
  Receive Date: 20050921
  Receipt Date: 20050907
  Transmission Date: 20060218
  Serious: Yes (Death)
  Sender: FDA-Public Use
  Company Number: DE_050916895

PATIENT
  Age: 46 Year
  Sex: Female

DRUGS (1)
  1. XIGRIS [Suspect]
     Indication: SEPSIS
     Dates: start: 20050906

REACTIONS (2)
  - BLOOD PRESSURE IMMEASURABLE [None]
  - HAEMORRHAGE [None]
